FAERS Safety Report 7927816-9 (Version None)
Quarter: 2011Q4

REPORT INFORMATION
  Report Type: 
  Country: None (occurrence: None)
  Receive Date: 20111118
  Receipt Date: 20111111
  Transmission Date: 20120403
  Serious: Yes (Other)
  Sender: FDA-Public Use
  Company Number: US-PERRIGO-11US007864

PATIENT
  Sex: Male
  Weight: 108.84 kg

DRUGS (2)
  1. TRIAMCINOLONE ACETONIDE [Suspect]
     Dosage: THIN AMOUNT, BID,LEFT HAND
     Route: 061
     Dates: start: 20110801, end: 20110901
  2. TRIAMCINOLONE ACETONIDE [Suspect]
     Indication: ECZEMA
     Dosage: THIN AMOUNT TWICE DAILY TO LEFT HAND
     Route: 061
     Dates: start: 20110701, end: 20110701

REACTIONS (4)
  - MYASTHENIA GRAVIS [None]
  - EYELID PTOSIS [None]
  - DIPLOPIA [None]
  - VISION BLURRED [None]
